FAERS Safety Report 8216174-0 (Version None)
Quarter: 2012Q1

REPORT INFORMATION
  Report Type: 
  Country: None (occurrence: None)
  Receive Date: 20120316
  Receipt Date: 20120308
  Transmission Date: 20120608
  Serious: Yes (Death, Hospitalization)
  Sender: FDA-Public Use
  Company Number: US-GLAXOSMITHKLINE-A0959080A

PATIENT
  Age: 60 Year
  Sex: Female
  Weight: 122.7 kg

DRUGS (2)
  1. XELODA [Concomitant]
  2. TYKERB [Suspect]
     Indication: BREAST CANCER
     Dosage: 1250MG PER DAY
     Route: 048

REACTIONS (2)
  - RENAL FAILURE [None]
  - BREAST CANCER METASTATIC [None]
